FAERS Safety Report 5578223-8 (Version None)
Quarter: 2007Q4

REPORT INFORMATION
  Report Type: 
  Country: None (occurrence: None)
  Receive Date: 20071227
  Receipt Date: 20071210
  Transmission Date: 20080405
  Serious: Yes (Death, Hospitalization, Other)
  Sender: FDA-Public Use
  Company Number: 2007-00574

PATIENT
  Age: 66 Year
  Sex: Male

DRUGS (12)
  1. VELCADE [Suspect]
     Indication: MULTIPLE MYELOMA
     Dosage: 2.20 MG
     Dates: start: 20070213, end: 20070306
  2. ULCERLMIN (SUCRALFATE) (ULCELMIN (SUCRALFATE) [Suspect]
     Indication: DRUG USE FOR UNKNOWN INDICATION
     Dosage: 3.00 G, ORAL
     Route: 048
  3. DEXAMETHASONE TAB [Concomitant]
  4. DIGOXIN [Concomitant]
  5. VOLTAREN [Concomitant]
  6. MAGNESIUM OXIDE (MAGNESIUM OXIDE) [Concomitant]
  7. CYTOTEC [Concomitant]
  8. PURSENNID (SENNA LEAF) [Concomitant]
  9. LANSOPRAZOLE [Concomitant]
  10. AMITRIPTYLINE HCL [Concomitant]
  11. DEPAS (ETIZOLAM) [Concomitant]
  12. CETILO [Concomitant]

REACTIONS (12)
  - ANAEMIA [None]
  - ANOREXIA [None]
  - BLOOD ALKALINE PHOSPHATASE INCREASED [None]
  - BLOOD CREATININE INCREASED [None]
  - BLOOD UREA INCREASED [None]
  - CONDITION AGGRAVATED [None]
  - DISEASE PROGRESSION [None]
  - HYPOTENSION [None]
  - NAUSEA [None]
  - PLATELET COUNT DECREASED [None]
  - PNEUMONIA BACTERIAL [None]
  - WHITE BLOOD CELL COUNT DECREASED [None]
